FAERS Safety Report 8435985-X (Version None)
Quarter: 2012Q2

REPORT INFORMATION
  Report Type: 
  Country: None (occurrence: None)
  Receive Date: 20120614
  Receipt Date: 20120530
  Transmission Date: 20120825
  Serious: Yes (Death)
  Sender: FDA-Public Use
  Company Number: US-WATSON-2012-09547

PATIENT
  Sex: Female

DRUGS (1)
  1. FENTANYL-50 [Suspect]
     Indication: PAIN
     Dosage: ^AS PRESCRIBED AND IN A FORSEEABLE MANNER^
     Route: 062
     Dates: start: 20100501, end: 20100602

REACTIONS (1)
  - OVERDOSE [None]
